FAERS Safety Report 13626436 (Version 1)
Quarter: 2017Q2

REPORT INFORMATION
  Report Type: Spontaneous
  Country: US (occurrence: US)
  Receive Date: 20170531
  Receipt Date: 20170531
  Transmission Date: 20170830
  Serious: Yes (Hospitalization, Other)
  Sender: FDA-Public Use
  Company Number: US-ASTELLAS-1372471

PATIENT
  Age: 68 Year
  Sex: Male
  Weight: 69.92 kg

DRUGS (1)
  1. TARCEVA [Suspect]
     Active Substance: ERLOTINIB HYDROCHLORIDE
     Indication: LUNG NEOPLASM MALIGNANT
     Dosage: FREQUENCY: QD
     Route: 048
     Dates: start: 20140124, end: 20140317

REACTIONS (8)
  - Diarrhoea [Unknown]
  - Nail infection [Unknown]
  - Candida infection [Unknown]
  - Skin exfoliation [Unknown]
  - Stomatitis [Unknown]
  - Gastrointestinal haemorrhage [Unknown]
  - Weight decreased [Unknown]
  - Dehydration [Unknown]

NARRATIVE: CASE EVENT DATE: 20140219
